FAERS Safety Report 4689527-5 (Version None)
Quarter: 2005Q2

REPORT INFORMATION
  Report Type: 
  Country: None (occurrence: None)
  Receive Date: 20050613
  Receipt Date: 20050613
  Transmission Date: 20051028
  Serious: Yes (Other)
  Sender: FDA-Public Use
  Company Number: None

PATIENT
  Age: 19 Month
  Sex: Male
  Weight: 11.3399 kg

DRUGS (2)
  1. CHILDREN'S ALLERGY FAST MELT (PFIZER) [Suspect]
     Indication: HYPERSENSITIVITY
     Dosage: 12.5 MG X 1 DOSE
     Dates: start: 20050531
  2. ZITHROMAX [Suspect]
     Indication: UPPER RESPIRATORY TRACT INFECTION
     Dosage: SEE SECTION B, #5
     Dates: start: 20050531, end: 20050605

REACTIONS (3)
  - CONSTIPATION [None]
  - MEDICATION ERROR [None]
  - TYPE IV HYPERSENSITIVITY REACTION [None]
